FAERS Safety Report 15307166 (Version 2)
Quarter: 2018Q3

REPORT INFORMATION
  Report Type: Spontaneous
  Country: BY (occurrence: BY)
  Receive Date: 20180822
  Receipt Date: 20180904
  Transmission Date: 20181010
  Serious: Yes (Hospitalization)
  Sender: FDA-Public Use
  Company Number: BY-JNJFOC-20180814395

PATIENT
  Age: 45 Year
  Sex: Female
  Weight: 59.4 kg

DRUGS (11)
  1. SODIUM CHLORIDE. [Concomitant]
     Active Substance: SODIUM CHLORIDE
     Route: 065
  2. BEDAQUILINE [Suspect]
     Active Substance: BEDAQUILINE
     Indication: TUBERCULOSIS
     Route: 048
     Dates: start: 20171129
  3. MELOXICAM. [Concomitant]
     Active Substance: MELOXICAM
     Dosage: ONCE IN MORNING, ONCE IN EVENING AND ONCE AT NIGHT
     Route: 048
     Dates: start: 20180628, end: 20180725
  4. CLOFAZIMINE [Suspect]
     Active Substance: CLOFAZIMINE
     Indication: TUBERCULOSIS
     Route: 048
     Dates: start: 20170518
  5. TENOFOVIR [Concomitant]
     Active Substance: TENOFOVIR
     Indication: HIV INFECTION
     Route: 048
  6. DOLUTEGRAVIR [Concomitant]
     Active Substance: DOLUTEGRAVIR
     Indication: HIV INFECTION
     Route: 048
  7. EMTRICITABINE [Concomitant]
     Active Substance: EMTRICITABINE
     Indication: HIV INFECTION
     Route: 048
  8. LINEZOLID. [Suspect]
     Active Substance: LINEZOLID
     Indication: TUBERCULOSIS
     Route: 048
     Dates: start: 20170518
  9. MUCALTIN [Concomitant]
     Dosage: TWICE IN MORNING, TWICE IN EVENING AND TWICE AT NIGHT
     Route: 048
     Dates: start: 20180606, end: 20180725
  10. DELAMANID [Suspect]
     Active Substance: DELAMANID
     Indication: TUBERCULOSIS
     Route: 048
     Dates: start: 20170518
  11. MELOXICAM. [Concomitant]
     Active Substance: MELOXICAM
     Dosage: ONCE IN MORNING AND ONCE AT NIGHT
     Route: 048
     Dates: start: 20180606, end: 20180628

REACTIONS (2)
  - Cor pulmonale [Recovered/Resolved]
  - Chronic obstructive pulmonary disease [Recovered/Resolved]

NARRATIVE: CASE EVENT DATE: 20180628
